FAERS Safety Report 20482042 (Version 1)
Quarter: 2022Q1

REPORT INFORMATION
  Report Type: Spontaneous
  Country: DE (occurrence: DE)
  Receive Date: 20220216
  Receipt Date: 20220216
  Transmission Date: 20220423
  Serious: No
  Sender: FDA-Public Use
  Company Number: DE-JAZZ-2021-DE-012867

PATIENT
  Age: 32 Year
  Sex: Female

DRUGS (1)
  1. ZEPZELCA [Suspect]
     Active Substance: LURBINECTEDIN
     Indication: Ovarian cancer
     Dosage: 3.2 MILLIGRAM/SQ. METER D1Q3W
     Route: 042
     Dates: start: 20210217, end: 20210421

REACTIONS (5)
  - Body temperature fluctuation [Unknown]
  - Myalgia [Unknown]
  - Fatigue [Unknown]
  - Constipation [Unknown]
  - Nausea [Unknown]

NARRATIVE: CASE EVENT DATE: 20210101
